FAERS Safety Report 8270590-X (Version None)
Quarter: 2012Q2

REPORT INFORMATION
  Report Type: 
  Country: None (occurrence: None)
  Receive Date: 20120406
  Receipt Date: 20110415
  Transmission Date: 20120825
  Serious: Yes (Death, Hospitalization, Other)
  Sender: FDA-Public Use
  Company Number: PL-022517

PATIENT
  Age: 83 Year
  Sex: Male

DRUGS (2)
  1. (OFATUMUMAB) [Suspect]
     Indication: CHRONIC LYMPHOCYTIC LEUKAEMIA
     Dosage: SEE IMAGE
     Route: 042
  2. (CHLORAMBUCIL) [Suspect]
     Indication: CHRONIC LYMPHOCYTIC LEUKAEMIA
     Dosage: 10 MG/M2 DAYS 1-7 EVERY 28 DAYS ORAL
     Route: 048
     Dates: start: 20110215

REACTIONS (7)
  - NEUTROPENIC SEPSIS [None]
  - DYSPHAGIA [None]
  - DEHYDRATION [None]
  - AGRANULOCYTOSIS [None]
  - MUCOSAL INFLAMMATION [None]
  - ASTHENIA [None]
  - RENAL FAILURE ACUTE [None]
